FAERS Safety Report 6323077-5 (Version None)
Quarter: 2009Q3

REPORT INFORMATION
  Report Type: 
  Country: None (occurrence: None)
  Receive Date: 20090824
  Receipt Date: 20090817
  Transmission Date: 20100115
  Serious: Yes (Other)
  Sender: FDA-Public Use
  Company Number: CA-AVENTIS-200914962EU

PATIENT
  Age: 65 Year
  Sex: Male

DRUGS (7)
  1. CLEXANE [Suspect]
     Indication: PULMONARY EMBOLISM
     Route: 058
     Dates: start: 20090601, end: 20090725
  2. CLEXANE [Suspect]
     Route: 058
     Dates: start: 20090726, end: 20090809
  3. METOPROLOL [Concomitant]
     Route: 048
     Dates: start: 20060101
  4. MAVIK [Concomitant]
     Route: 048
     Dates: start: 20040101
  5. PLAVIX [Concomitant]
     Indication: PROPHYLAXIS
     Route: 048
     Dates: start: 20090726
  6. PARIET [Concomitant]
     Route: 048
     Dates: start: 20090726
  7. DIAMICRON [Concomitant]
     Route: 048
     Dates: start: 20040101

REACTIONS (6)
  - CONTUSION [None]
  - HYPERTENSION [None]
  - IMMEDIATE POST-INJECTION REACTION [None]
  - INJECTION SITE PAIN [None]
  - TREMOR [None]
  - WRONG TECHNIQUE IN DRUG USAGE PROCESS [None]
